FAERS Safety Report 9464923 (Version 3)
Quarter: 2014Q3

REPORT INFORMATION
  Report Type: Spontaneous
  Country: US (occurrence: US)
  Receive Date: 20130819
  Receipt Date: 20140929
  Transmission Date: 20150326
  Serious: Yes (Hospitalization, Disabling, Other)
  Sender: FDA-Public Use
  Company Number: US-009507513-1308USA008273

PATIENT
  Sex: Female
  Weight: 53.61 kg

DRUGS (4)
  1. FOSAMAX [Suspect]
     Active Substance: ALENDRONATE SODIUM
     Indication: OSTEOPOROSIS
     Dosage: 70 MG, QW
     Route: 048
     Dates: start: 20040409, end: 20100126
  2. CALCIUM (UNSPECIFIED) [Concomitant]
     Active Substance: CALCIUM
     Dosage: 500 MG, QD
     Dates: start: 2000
  3. ALENDRONATE SODIUM. [Suspect]
     Active Substance: ALENDRONATE SODIUM
     Indication: OSTEOPOROSIS
     Dosage: 70 MG, QW
     Route: 048
     Dates: start: 20080204, end: 20111102
  4. VITAMIN D [Concomitant]
     Active Substance: CHOLECALCIFEROL
     Dosage: 2000  IU, QD
     Dates: start: 2005

REACTIONS (25)
  - Pancreatic carcinoma [Unknown]
  - Femur fracture [Not Recovered/Not Resolved]
  - Chronic obstructive pulmonary disease [Not Recovered/Not Resolved]
  - Pancreatic operation [Unknown]
  - Anaemia [Unknown]
  - Chronic hepatitis C [Not Recovered/Not Resolved]
  - Type 2 diabetes mellitus [Unknown]
  - Vitamin D deficiency [Unknown]
  - Radius fracture [Unknown]
  - Hypercholesterolaemia [Unknown]
  - Rotator cuff syndrome [Unknown]
  - Gastrooesophageal reflux disease [Unknown]
  - Open reduction of fracture [Unknown]
  - Surgery [Unknown]
  - Adverse event [Unknown]
  - Myositis [Unknown]
  - Myalgia [Unknown]
  - Myalgia [Unknown]
  - Surgery [Unknown]
  - Osteoarthritis [Unknown]
  - Iliotibial band syndrome [Unknown]
  - Low turnover osteopathy [Unknown]
  - Asthma [Unknown]
  - Wound [Unknown]
  - Hysterectomy [Unknown]

NARRATIVE: CASE EVENT DATE: 2008
